FAERS Safety Report 20807246 (Version 1)
Quarter: 2022Q2

REPORT INFORMATION
  Report Type: Spontaneous
  Country: FI (occurrence: FI)
  Receive Date: 20220510
  Receipt Date: 20220510
  Transmission Date: 20220721
  Serious: Yes (Other)
  Sender: FDA-Public Use
  Company Number: FI-ABBVIE-22K-055-4384567-00

PATIENT
  Age: 40 Year
  Sex: Female

DRUGS (2)
  1. HUMIRA [Suspect]
     Active Substance: ADALIMUMAB
     Indication: Polyarthritis
     Route: 058
  2. RINVOQ [Suspect]
     Active Substance: UPADACITINIB
     Indication: Polyarthritis
     Route: 048

REACTIONS (15)
  - Knee arthroplasty [Recovered/Resolved]
  - Knee arthroplasty [Recovered/Resolved]
  - Femur fracture [Unknown]
  - Anaphylactic reaction [Unknown]
  - Fibrosis tendinous [Unknown]
  - C-reactive protein increased [Unknown]
  - Knee arthroplasty [Unknown]
  - Nerve compression [Unknown]
  - Hip arthroplasty [Unknown]
  - Synovitis [Unknown]
  - Arthrodesis [Recovered/Resolved]
  - Arthropathy [Unknown]
  - Bone graft [Unknown]
  - Propionibacterium infection [Unknown]
  - Drug ineffective [Unknown]

NARRATIVE: CASE EVENT DATE: 20140101
